FAERS Safety Report 9444707 (Version 1)
Quarter: 2013Q3

REPORT INFORMATION
  Report Type: Spontaneous
  Country: IT (occurrence: IT)
  Receive Date: 20130807
  Receipt Date: 20130807
  Transmission Date: 20140515
  Serious: Yes (Other)
  Sender: FDA-Public Use
  Company Number: IT-TEVA-423050ISR

PATIENT
  Age: 49 Year
  Sex: Female
  Weight: 65 kg

DRUGS (7)
  1. OXALIPLATINO TEVA [Suspect]
     Indication: COLON CANCER
     Dosage: CYCLE OF 21 DAYS
     Dates: start: 20130402, end: 20130423
  2. XELODA [Concomitant]
     Indication: COLON CANCER
     Dosage: 3300 MILLIGRAM DAILY;
     Route: 048
     Dates: start: 20130402, end: 20130423
  3. AVASTIN [Concomitant]
     Indication: COLON CANCER
     Dosage: 485 MILLIGRAM DAILY;
     Route: 042
     Dates: start: 20130402, end: 20130423
  4. LANSOPRAZOLO [Concomitant]
  5. ZOFRAN [Concomitant]
  6. ALOXI [Concomitant]
     Dosage: 250 MICROGRAM DAILY;
  7. DESAMETASONE HOSPIRA [Concomitant]
     Dosage: 4 MILLIGRAM DAILY;

REACTIONS (2)
  - Paraesthesia [Recovering/Resolving]
  - Laryngospasm [Recovering/Resolving]
